FAERS Safety Report 7465413-2 (Version None)
Quarter: 2011Q2

REPORT INFORMATION
  Report Type: 
  Country: None (occurrence: None)
  Receive Date: 20110509
  Receipt Date: 20100927
  Transmission Date: 20111010
  Serious: No
  Sender: FDA-Public Use
  Company Number: US-BAUSCH-2010BL005530

PATIENT
  Age: 70 Year
  Sex: Female

DRUGS (3)
  1. LOTEMAX [Suspect]
     Indication: EYE DISCHARGE
     Route: 047
     Dates: start: 20100927, end: 20100927
  2. LOTEMAX [Suspect]
     Indication: OCULAR HYPERAEMIA
     Route: 047
     Dates: start: 20100927, end: 20100927
  3. SYNTHROID [Concomitant]
     Indication: THYROID DISORDER
     Route: 048

REACTIONS (2)
  - MADAROSIS [None]
  - HYPERSENSITIVITY [None]
